FAERS Safety Report 9204547 (Version 1)
Quarter: 2013Q2

REPORT INFORMATION
  Report Type: Spontaneous
  Country: JP (occurrence: JP)
  Receive Date: 20130402
  Receipt Date: 20130402
  Transmission Date: 20140414
  Serious: No
  Sender: FDA-Public Use
  Company Number: JP-ROCHE-1208498

PATIENT
  Age: 39 Year
  Sex: Female

DRUGS (3)
  1. TAMIFLU [Suspect]
     Indication: PRODUCT USED FOR UNKNOWN INDICATION
     Route: 048
     Dates: start: 20130322, end: 20130322
  2. TAMIFLU [Suspect]
     Route: 048
     Dates: start: 20130323, end: 20130323
  3. TAMIFLU [Suspect]
     Route: 048
     Dates: start: 20130325

REACTIONS (2)
  - Overdose [Unknown]
  - No adverse event [Unknown]
